FAERS Safety Report 10029679 (Version 1)
Quarter: 2014Q1

REPORT INFORMATION
  Report Type: Spontaneous
  Country: US (occurrence: None)
  Receive Date: 20140321
  Receipt Date: 20140321
  Transmission Date: 20141002
  Serious: Yes (Other)
  Sender: FDA-Public Use
  Company Number: None

PATIENT
  Age: 19 Year
  Sex: Male
  Weight: 105 kg

DRUGS (1)
  1. PAROXETINE [Suspect]
     Indication: SCHIZOTYPAL PERSONALITY DISORDER

REACTIONS (2)
  - Sexual dysfunction [None]
  - Genital hypoaesthesia [None]
